FAERS Safety Report 5143151-9 (Version None)
Quarter: 2006Q4

REPORT INFORMATION
  Report Type: 
  Country: None (occurrence: None)
  Receive Date: 20061103
  Receipt Date: 20060829
  Transmission Date: 20070319
  Serious: Yes (Hospitalization)
  Sender: FDA-Public Use
  Company Number: JP-AVENTIS-200612675JP

PATIENT
  Age: 67 Year
  Sex: Female
  Weight: 45 kg

DRUGS (9)
  1. LASIX [Suspect]
     Route: 048
     Dates: end: 20060721
  2. LUPRAC [Suspect]
     Route: 048
     Dates: start: 20060722, end: 20060726
  3. LANIRAPID [Concomitant]
     Route: 048
     Dates: end: 20060726
  4. LOCHOL [Concomitant]
     Route: 048
     Dates: end: 20060726
  5. URINORM [Concomitant]
     Route: 048
     Dates: end: 20060726
  6. ACETAMINOPHEN [Concomitant]
     Route: 048
     Dates: end: 20060726
  7. ALOSENN [Concomitant]
     Route: 048
     Dates: end: 20060726
  8. PURSENNID                          /00571901/ [Concomitant]
     Route: 048
     Dates: end: 20060726
  9. WARFARIN SODIUM [Concomitant]
     Indication: ATRIAL FIBRILLATION
     Route: 048

REACTIONS (2)
  - DERMATITIS BULLOUS [None]
  - TOXIC EPIDERMAL NECROLYSIS [None]
